FAERS Safety Report 9506144 (Version 1)
Quarter: 2013Q1

REPORT INFORMATION
  Report Type: Spontaneous
  Country: US (occurrence: None)
  Receive Date: 20130301
  Receipt Date: 20130301
  Transmission Date: 20140127
  Serious: Yes (Hospitalization)
  Sender: FDA-Public Use
  Company Number: PHEH2012US017372

PATIENT
  Age: 21 Year
  Sex: Female

DRUGS (3)
  1. TEGRETOL (CARBAMAZEPINE) UNKNOWN [Suspect]
     Indication: CONVULSION
     Route: 048
  2. KEPPRA (LEVETIRACETAM) [Concomitant]
  3. ATIVAN (LORAZEPAM) [Concomitant]

REACTIONS (1)
  - Convulsion [None]
